FAERS Safety Report 24168630 (Version 2)
Quarter: 2024Q3

REPORT INFORMATION
  Report Type: Spontaneous
  Country: US (occurrence: US)
  Receive Date: 20240802
  Receipt Date: 20240806
  Transmission Date: 20241017
  Serious: No
  Sender: DAIICHI
  Company Number: US-DAIICHI SANKYO, INC.-DSU-2024-138374AA

PATIENT
  Age: 37 Year
  Sex: Female

DRUGS (2)
  1. ENHERTU [Suspect]
     Active Substance: FAM-TRASTUZUMAB DERUXTECAN-NXKI
     Indication: Breast cancer metastatic
     Dosage: UNK
     Route: 065
  2. ENHERTU [Suspect]
     Active Substance: FAM-TRASTUZUMAB DERUXTECAN-NXKI
     Indication: HER2 positive breast cancer

REACTIONS (12)
  - Condition aggravated [Unknown]
  - Brain fog [Not Recovered/Not Resolved]
  - Partial seizures [Not Recovered/Not Resolved]
  - Balance disorder [Unknown]
  - Drug intolerance [Unknown]
  - Paraesthesia [Unknown]
  - Headache [Unknown]
  - Neurological symptom [Not Recovered/Not Resolved]
  - Interstitial lung disease [Unknown]
  - Nervous system disorder [Unknown]
  - Nausea [Not Recovered/Not Resolved]
  - Fatigue [Not Recovered/Not Resolved]
